FAERS Safety Report 15171636 (Version 1)
Quarter: 2018Q3

REPORT INFORMATION
  Report Type: Spontaneous
  Country: US (occurrence: US)
  Receive Date: 20180622
  Receipt Date: 20180622
  Transmission Date: 20181010
  Serious: Yes (Hospitalization)
  Sender: FDA-Public Use
  Company Number: None

PATIENT
  Sex: Female

DRUGS (11)
  1. FASLODEX [Concomitant]
     Active Substance: FULVESTRANT
  2. ZOLADEX [Concomitant]
     Active Substance: GOSERELIN ACETATE
  3. LUPRON INJ [Concomitant]
  4. ZOMETA [Concomitant]
     Active Substance: ZOLEDRONIC ACID
  5. TYLENOL [Concomitant]
     Active Substance: ACETAMINOPHEN
  6. POTASSIUM [Concomitant]
     Active Substance: POTASSIUM
  7. AFINITOR [Suspect]
     Active Substance: EVEROLIMUS
     Indication: BREAST CANCER FEMALE
     Route: 048
     Dates: start: 20180611
  8. MAGNESIUM [Concomitant]
     Active Substance: MAGNESIUM
  9. VITAMIN D3 [Concomitant]
     Active Substance: CHOLECALCIFEROL
  10. PANTOPRAZOLE [Concomitant]
     Active Substance: PANTOPRAZOLE
  11. CALCIUM CL [Concomitant]

REACTIONS (2)
  - Hysterectomy [None]
  - Drug dose omission [None]
